FAERS Safety Report 11646523 (Version 1)
Quarter: 2015Q4

REPORT INFORMATION
  Report Type: Spontaneous
  Country: BR (occurrence: BR)
  Receive Date: 20151020
  Receipt Date: 20151020
  Transmission Date: 20160304
  Serious: Yes (Other)
  Sender: FDA-Public Use
  Company Number: BR-BIOMARINAP-BR-2015-107765

PATIENT
  Age: 4 Year
  Sex: Female

DRUGS (1)
  1. VIMIZIM [Suspect]
     Active Substance: ELOSULFASE ALFA
     Indication: MUCOPOLYSACCHARIDOSIS IV
     Dosage: 25 MG, QW
     Route: 042
     Dates: start: 20140909

REACTIONS (1)
  - Shock [Recovered/Resolved]

NARRATIVE: CASE EVENT DATE: 20151013
